FAERS Safety Report 22115190 (Version 1)
Quarter: 2023Q1

REPORT INFORMATION
  Report Type: Spontaneous
  Country: US (occurrence: None)
  Receive Date: 20230320
  Receipt Date: 20230320
  Transmission Date: 20230418
  Serious: Yes (Hospitalization)
  Sender: FDA-Public Use
  Company Number: US-FARMAPROD-202303-0652

PATIENT
  Sex: Female

DRUGS (18)
  1. OXERVATE [Suspect]
     Active Substance: CENEGERMIN-BKBJ
     Indication: Neurotrophic keratopathy
     Route: 047
     Dates: start: 20221004, end: 20221129
  2. OXERVATE [Suspect]
     Active Substance: CENEGERMIN-BKBJ
     Indication: Corneal erosion
     Route: 047
     Dates: start: 20230228
  3. ELIQUIS [Concomitant]
     Active Substance: APIXABAN
  4. EYSUVIS [Concomitant]
     Active Substance: LOTEPREDNOL ETABONATE
  5. FLAREX [Concomitant]
     Active Substance: FLUOROMETHOLONE ACETATE
  6. PRED FORTE [Concomitant]
     Active Substance: PREDNISOLONE ACETATE
  7. LOTEMAX [Concomitant]
     Active Substance: LOTEPREDNOL ETABONATE
  8. MAGNESIUM [Concomitant]
     Active Substance: MAGNESIUM
  9. REFRESH P.M. [Concomitant]
     Active Substance: MINERAL OIL\PETROLATUM
     Dosage: 42.5-57.3%
  10. TYLENOL PM EXTRA STRENGTH [Concomitant]
     Active Substance: ACETAMINOPHEN\DIPHENHYDRAMINE HYDROCHLORIDE
  11. OMEGA-3-FISH OIL-VIT D3 [Concomitant]
  12. CELECOXIB [Concomitant]
     Active Substance: CELECOXIB
  13. METOPROLOL SUCCINATE [Concomitant]
     Active Substance: METOPROLOL SUCCINATE
  14. HYDROCHLOROTHIAZIDE [Concomitant]
     Active Substance: HYDROCHLOROTHIAZIDE
  15. LEVOTHYROXINE [Concomitant]
     Active Substance: LEVOTHYROXINE
  16. ATORVASTATIN CALCIUM [Concomitant]
     Active Substance: ATORVASTATIN CALCIUM
  17. ALLOPURINOL [Concomitant]
     Active Substance: ALLOPURINOL
  18. LISINOPRIL [Concomitant]
     Active Substance: LISINOPRIL

REACTIONS (1)
  - Cardiac disorder [Unknown]
